FAERS Safety Report 5291936-0 (Version None)
Quarter: 2007Q2

REPORT INFORMATION
  Report Type: 
  Country: None (occurrence: None)
  Receive Date: 20070406
  Receipt Date: 20070406
  Transmission Date: 20071010
  Serious: Yes (Other)
  Sender: FDA-Public Use
  Company Number: None

PATIENT
  Age: 79 Year
  Sex: Male
  Weight: 126.2 kg

DRUGS (1)
  1. NASONEX [Suspect]

REACTIONS (2)
  - EPISTAXIS [None]
  - HEADACHE [None]
